FAERS Safety Report 6890883-8 (Version None)
Quarter: 2010Q3

REPORT INFORMATION
  Report Type: 
  Country: None (occurrence: None)
  Receive Date: 20100731
  Receipt Date: 20090403
  Transmission Date: 20110219
  Serious: No
  Sender: FDA-Public Use
  Company Number: US-PFIZER INC-2009160824

PATIENT
  Sex: Female

DRUGS (3)
  1. LIPITOR [Suspect]
     Indication: BLOOD CHOLESTEROL INCREASED
     Dosage: 20 MG, 1X/DAY
     Dates: start: 20090108
  2. AMLODIPINE [Concomitant]
     Dosage: UNK
  3. VITAMINS [Concomitant]
     Dosage: UNK

REACTIONS (5)
  - CONSTIPATION [None]
  - FATIGUE [None]
  - INSOMNIA [None]
  - MUSCULOSKELETAL PAIN [None]
  - NOCTURIA [None]
